FAERS Safety Report 19477360 (Version 1)
Quarter: 2021Q2

REPORT INFORMATION
  Report Type: Spontaneous
  Country: ZA (occurrence: ZA)
  Receive Date: 20210630
  Receipt Date: 20210630
  Transmission Date: 20210717
  Serious: Yes (Death, Other)
  Sender: FDA-Public Use
  Company Number: ZA-ROCHE-2857936

PATIENT
  Age: 89 Year
  Sex: Male
  Weight: 90 kg

DRUGS (5)
  1. PREXUM [Concomitant]
     Active Substance: PERINDOPRIL ERBUMINE
     Indication: PRODUCT USED FOR UNKNOWN INDICATION
  2. ASPRIN [Concomitant]
     Active Substance: ASPIRIN
     Indication: PRODUCT USED FOR UNKNOWN INDICATION
  3. ACTILYSE [Suspect]
     Active Substance: ALTEPLASE
     Indication: ISCHAEMIC STROKE
     Dosage: DOSE ADMINISTERED WAS 0.9MG/KG OF BODY WEIGHT.?8 MG STAT AND 73 MG OVER 1 HOUR
     Route: 042
  4. ACTILYSE [Suspect]
     Active Substance: ALTEPLASE
     Route: 042
  5. BILOCOR [Concomitant]
     Active Substance: BISOPROLOL FUMARATE
     Indication: PRODUCT USED FOR UNKNOWN INDICATION

REACTIONS (5)
  - Swollen tongue [Unknown]
  - Angioedema [Fatal]
  - Off label use [Unknown]
  - Swelling face [Unknown]
  - Obstructive airways disorder [Unknown]
